FAERS Safety Report 7002746-8 (Version None)
Quarter: 2010Q3

REPORT INFORMATION
  Report Type: 
  Country: None (occurrence: None)
  Receive Date: 20100920
  Receipt Date: 20100914
  Transmission Date: 20110219
  Serious: Yes (Hospitalization)
  Sender: FDA-Public Use
  Company Number: BR-BAYER-200924529LA

PATIENT
  Age: 38 Year
  Sex: Female

DRUGS (1)
  1. BETAFERON [Suspect]
     Indication: MULTIPLE SCLEROSIS
     Route: 058
     Dates: start: 20090814, end: 20090901

REACTIONS (3)
  - CRYING [None]
  - GESTATIONAL HYPERTENSION [None]
  - TENSION [None]
